FAERS Safety Report 5594287-X (Version None)
Quarter: 2008Q1

REPORT INFORMATION
  Report Type: 
  Country: None (occurrence: None)
  Receive Date: 20080117
  Receipt Date: 20080107
  Transmission Date: 20080703
  Serious: Yes (Other)
  Sender: FDA-Public Use
  Company Number: PHHO2007AU19711

PATIENT
  Sex: Male

DRUGS (2)
  1. AMN107 [Suspect]
     Indication: GASTROINTESTINAL STROMAL TUMOUR
     Dosage: 400 MG, BID
     Route: 048
     Dates: start: 20071108, end: 20071116
  2. AMN107 [Suspect]
     Dosage: 200 MG, UNK
     Route: 048
     Dates: start: 20071126

REACTIONS (9)
  - ARTHRALGIA [None]
  - DYSURIA [None]
  - ERYTHEMA [None]
  - EYE PAIN [None]
  - EYE PRURITUS [None]
  - LETHARGY [None]
  - POLLAKIURIA [None]
  - RETINAL HAEMORRHAGE [None]
  - VISUAL ACUITY REDUCED [None]
